FAERS Safety Report 17161550 (Version 1)
Quarter: 2019Q4

REPORT INFORMATION
  Report Type: Spontaneous
  Country: US (occurrence: US)
  Receive Date: 20191216
  Receipt Date: 20191216
  Transmission Date: 20200122
  Serious: No
  Sender: FDA-Public Use
  Company Number: US-JNJFOC-20191210951

PATIENT
  Age: 30 Year
  Sex: Male
  Weight: 81.72 kg

DRUGS (1)
  1. MENS ROGAINE EXTRA STRENGTH [Suspect]
     Active Substance: MINOXIDIL
     Indication: ALOPECIA
     Dosage: DOSE AND FREQUENCY: 1 ML AND TWICE A DAY.?THE PRODUCT WAS LAST ADMINISTERED ON 05/DEC/2019.
     Route: 061
     Dates: start: 20190319

REACTIONS (3)
  - Application site dryness [Not Recovered/Not Resolved]
  - Dandruff [Not Recovered/Not Resolved]
  - Alopecia [Not Recovered/Not Resolved]

NARRATIVE: CASE EVENT DATE: 20191015
